FAERS Safety Report 6414047-7 (Version None)
Quarter: 2009Q4

REPORT INFORMATION
  Report Type: 
  Country: None (occurrence: None)
  Receive Date: 20091026
  Receipt Date: 20091019
  Transmission Date: 20100525
  Serious: Yes (Hospitalization)
  Sender: FDA-Public Use
  Company Number: FR-B.I. PHARMACEUTICALS,INC./RIDGEFIELD-2009-BP-02581YA

PATIENT
  Sex: Male

DRUGS (9)
  1. TAMSULOSIN HCL [Suspect]
     Dosage: 0.4 MG
     Route: 048
  2. RAMIPRIL [Suspect]
     Dosage: 25 MG
     Route: 048
  3. BISOPROLOL FUMARATE [Suspect]
     Dosage: 10 MG
     Route: 048
  4. DISCOTRINE (GLYCERYL TRINITRATE) [Suspect]
     Dosage: 10 MG
     Route: 062
  5. PREVISCAN (PENTOXIFYLLINE) [Concomitant]
  6. ZYLORIC (ALLOPURINOL SODIUM) [Concomitant]
  7. TOBREX (TOBRAMYCIN SULFATE) [Concomitant]
  8. BICARBONATE (SODIUM BICARBONATE) [Concomitant]
  9. PRAVASTATIN SODIUM [Concomitant]

REACTIONS (4)
  - BRADYCARDIA [None]
  - HYPERKALAEMIA [None]
  - MALAISE [None]
  - RENAL FAILURE [None]
